FAERS Safety Report 14686892 (Version 1)
Quarter: 2018Q1

REPORT INFORMATION
  Report Type: Spontaneous
  Country: MM (occurrence: MM)
  Receive Date: 20180327
  Receipt Date: 20180327
  Transmission Date: 20180509
  Serious: Yes (Death, Other)
  Sender: FDA-Public Use
  Company Number: MM-GILEAD-2018-0328966

PATIENT
  Age: 61 Year
  Sex: Female

DRUGS (2)
  1. DACLATASVIR. [Suspect]
     Active Substance: DACLATASVIR
     Indication: PRODUCT USED FOR UNKNOWN INDICATION
     Route: 065
  2. SOVALDI [Suspect]
     Active Substance: SOFOSBUVIR
     Indication: PRODUCT USED FOR UNKNOWN INDICATION
     Route: 065

REACTIONS (7)
  - Varices oesophageal [Unknown]
  - Drug-induced liver injury [Fatal]
  - Abdominal distension [Unknown]
  - Jaundice [Unknown]
  - Peritonitis bacterial [Fatal]
  - Ascites [Unknown]
  - Pyrexia [Unknown]
